FAERS Safety Report 24432191 (Version 3)
Quarter: 2024Q4

REPORT INFORMATION
  Report Type: Spontaneous
  Country: GR (occurrence: GR)
  Receive Date: 20241014
  Receipt Date: 20241218
  Transmission Date: 20250115
  Serious: Yes (Death, Other)
  Sender: ROCHE
  Company Number: GR-002147023-NVSC2024GR198997

PATIENT
  Sex: Male

DRUGS (1)
  1. XOLAIR [Suspect]
     Active Substance: OMALIZUMAB
     Indication: Asthma
     Dosage: UNK
     Route: 065

REACTIONS (4)
  - Metastases to bone [Unknown]
  - Liver function test abnormal [Unknown]
  - Pancreatic carcinoma metastatic [Unknown]
  - Death [Fatal]
